FAERS Safety Report 7788146-1 (Version None)
Quarter: 2011Q3

REPORT INFORMATION
  Report Type: 
  Country: None (occurrence: None)
  Receive Date: 20110927
  Receipt Date: 20110909
  Transmission Date: 20111222
  Serious: Yes (Other)
  Sender: FDA-Public Use
  Company Number: IMP_05430_2011

PATIENT
  Age: 86 Year
  Sex: Female

DRUGS (8)
  1. SPIRONOLACTONE [Suspect]
     Indication: ATRIAL FLUTTER
     Dosage: DF
  2. SPIRONOLACTONE [Suspect]
     Indication: DYSPNOEA
     Dosage: DF
  3. ACE INHIBITORS (ACE INHIBITORS) [Suspect]
     Indication: ATRIAL FLUTTER
     Dosage: DF
  4. ACE INHIBITORS (ACE INHIBITORS) [Suspect]
     Indication: DYSPNOEA
     Dosage: DF
  5. FUROSEMIDE [Suspect]
     Indication: ATRIAL FLUTTER
     Dosage: DF
  6. FUROSEMIDE [Suspect]
     Indication: DYSPNOEA
     Dosage: DF
  7. DIGOXIN [Suspect]
     Indication: ATRIAL FLUTTER
     Dosage: DF
  8. DIGOXIN [Suspect]
     Indication: DYSPNOEA
     Dosage: DF

REACTIONS (1)
  - CARDIOACTIVE DRUG LEVEL ABOVE THERAPEUTIC [None]
